FAERS Safety Report 9830601 (Version 1)
Quarter: 2014Q1

REPORT INFORMATION
  Report Type: Spontaneous
  Country: GR (occurrence: GR)
  Receive Date: 20140120
  Receipt Date: 20140120
  Transmission Date: 20141002
  Serious: Yes (Death, Hospitalization)
  Sender: FDA-Public Use
  Company Number: GR-PFIZER INC-2014011113

PATIENT
  Age: 58 Year
  Sex: Male

DRUGS (10)
  1. METHYLPREDNISOLONE [Suspect]
     Dosage: UNK
  2. TACROLIMUS [Suspect]
     Dosage: UNK
  3. CO-TRIMOXAZOLE [Suspect]
     Dosage: UNK
  4. ACYCLOVIR [Suspect]
     Dosage: UNK
  5. VORICONAZOLE [Concomitant]
     Indication: ZYGOMYCOSIS
     Dosage: UNK
  6. POSACONAZOLE [Concomitant]
     Dosage: UNK
  7. AMPHOTERICINE B, LIPOSOME [Concomitant]
     Dosage: UNK
  8. CASPOFUNGIN [Concomitant]
     Dosage: UNK
  9. INSULIN [Concomitant]
  10. METFORMIN [Concomitant]
     Dosage: UNK

REACTIONS (1)
  - Zygomycosis [Fatal]
